FAERS Safety Report 11279391 (Version 2)
Quarter: 2015Q3

REPORT INFORMATION
  Report Type: Spontaneous
  Country: DE (occurrence: DE)
  Receive Date: 20150717
  Receipt Date: 20150724
  Transmission Date: 20151125
  Serious: Yes (Hospitalization, Disabling, Other)
  Sender: FDA-Public Use
  Company Number: DE-PFIZER INC-2015154588

PATIENT
  Age: 13 Year
  Sex: Female
  Weight: 35 kg

DRUGS (7)
  1. METAMIZOLE [Concomitant]
     Active Substance: METAMIZOLE
     Dosage: 500 MG, AS NEEDED
  2. LYRICA [Suspect]
     Active Substance: PREGABALIN
     Dosage: 70 MG, (1X 40 MG, 1X30 MG)
     Route: 048
     Dates: start: 20150421, end: 20150421
  3. LYRICA [Suspect]
     Active Substance: PREGABALIN
     Indication: TRIGEMINAL NEURALGIA
     Dosage: 20 MG, 2X/DAY
     Route: 048
     Dates: start: 20150315, end: 20150417
  4. LIDOCAIN /00033401/ [Concomitant]
     Active Substance: LIDOCAINE
     Dosage: 1 DF, 1X/DAY, PATCH
     Route: 062
  5. LYRICA [Suspect]
     Active Substance: PREGABALIN
     Dosage: 30 MG, 2X/DAY
     Route: 048
     Dates: start: 20150422, end: 20150423
  6. LYRICA [Suspect]
     Active Substance: PREGABALIN
     Dosage: 50 MG, (1X30 MG, 1X20 MG)
     Route: 048
     Dates: start: 20150424
  7. LYRICA [Suspect]
     Active Substance: PREGABALIN
     Dosage: 40 MG, 2X/DAY
     Route: 048
     Dates: start: 20150418, end: 20150420

REACTIONS (8)
  - Pseudomyopia [Unknown]
  - Amblyopia [Recovered/Resolved with Sequelae]
  - Visual acuity reduced [Not Recovered/Not Resolved]
  - Nausea [Unknown]
  - Blindness [Recovered/Resolved with Sequelae]
  - Vision blurred [Unknown]
  - Accommodation disorder [Not Recovered/Not Resolved]
  - Product use issue [Recovered/Resolved]

NARRATIVE: CASE EVENT DATE: 20150315
